FAERS Safety Report 22142042 (Version 2)
Quarter: 2023Q1

REPORT INFORMATION
  Report Type: Spontaneous
  Country: CN (occurrence: CN)
  Receive Date: 20230327
  Receipt Date: 20230327
  Transmission Date: 20230418
  Serious: Yes (Hospitalization, Other)
  Sender: FDA-Public Use
  Company Number: CN-MLMSERVICE-20230315-4167558-1

PATIENT
  Age: 67 Year
  Sex: Female

DRUGS (22)
  1. METHOTREXATE SODIUM [Suspect]
     Active Substance: METHOTREXATE SODIUM
     Indication: Invasive ductal breast carcinoma
     Dosage: 30 MG IV GTT Q3W
     Route: 042
     Dates: start: 2004
  2. METHOTREXATE SODIUM [Suspect]
     Active Substance: METHOTREXATE SODIUM
     Indication: Triple negative breast cancer
  3. OXALIPLATIN [Suspect]
     Active Substance: OXALIPLATIN
     Indication: Metastases to lung
     Dosage: 100 MG D1D8 IV GTT Q3W
     Route: 042
     Dates: start: 201806, end: 201903
  4. OXALIPLATIN [Suspect]
     Active Substance: OXALIPLATIN
     Indication: Metastases to lymph nodes
     Dosage: 100MG D1D8 IV GTT Q3W
     Route: 042
     Dates: start: 201612, end: 201805
  5. OXALIPLATIN [Suspect]
     Active Substance: OXALIPLATIN
     Indication: Invasive ductal breast carcinoma
  6. OXALIPLATIN [Suspect]
     Active Substance: OXALIPLATIN
     Indication: Triple negative breast cancer
  7. DOCETAXEL [Suspect]
     Active Substance: DOCETAXEL
     Indication: Metastases to lymph nodes
     Dosage: 60 MG D1D8 IV GTT Q3W
     Route: 042
     Dates: start: 201806, end: 201903
  8. DOCETAXEL [Suspect]
     Active Substance: DOCETAXEL
     Indication: Metastases to lung
     Dosage: 60 MG D1D8 IV GTT Q3W
     Route: 042
     Dates: start: 201612, end: 201805
  9. DOCETAXEL [Suspect]
     Active Substance: DOCETAXEL
     Indication: Invasive ductal breast carcinoma
  10. DOCETAXEL [Suspect]
     Active Substance: DOCETAXEL
     Indication: Triple negative breast cancer
  11. CYCLOPHOSPHAMIDE [Suspect]
     Active Substance: CYCLOPHOSPHAMIDE
     Indication: Triple negative breast cancer
     Dosage: 600 MG IV GTT Q3W
     Route: 042
     Dates: start: 2004
  12. CYCLOPHOSPHAMIDE [Suspect]
     Active Substance: CYCLOPHOSPHAMIDE
     Indication: Invasive ductal breast carcinoma
  13. FLUOROURACIL [Suspect]
     Active Substance: FLUOROURACIL
     Indication: Triple negative breast cancer
     Dosage: 500 MG IV GTT Q3W
     Route: 042
     Dates: start: 2004
  14. FLUOROURACIL [Suspect]
     Active Substance: FLUOROURACIL
     Indication: Invasive ductal breast carcinoma
  15. BEVACIZUMAB [Suspect]
     Active Substance: BEVACIZUMAB
     Indication: Triple negative breast cancer
     Dosage: 300 MG D1 IV GTT Q3W
     Route: 042
     Dates: start: 201806, end: 201903
  16. BEVACIZUMAB [Suspect]
     Active Substance: BEVACIZUMAB
     Indication: Metastases to lung
  17. BEVACIZUMAB [Suspect]
     Active Substance: BEVACIZUMAB
     Indication: Metastases to lymph nodes
  18. BEVACIZUMAB [Suspect]
     Active Substance: BEVACIZUMAB
     Indication: Invasive ductal breast carcinoma
  19. CAPECITABINE [Suspect]
     Active Substance: CAPECITABINE
     Indication: Invasive ductal breast carcinoma
     Dosage: 1.5 G BID PO D1-D14 Q3W
     Route: 048
     Dates: start: 201904, end: 202108
  20. CAPECITABINE [Suspect]
     Active Substance: CAPECITABINE
     Indication: Metastases to lung
  21. CAPECITABINE [Suspect]
     Active Substance: CAPECITABINE
     Indication: Metastases to lymph nodes
  22. CAPECITABINE [Suspect]
     Active Substance: CAPECITABINE
     Indication: Triple negative breast cancer

REACTIONS (4)
  - Hormone receptor positive breast cancer [Recovering/Resolving]
  - Hormone receptor positive breast cancer [Recovering/Resolving]
  - Metastases to pleura [Recovering/Resolving]
  - HER2 positive breast cancer [Recovering/Resolving]

NARRATIVE: CASE EVENT DATE: 20210401
